FAERS Safety Report 9072509 (Version 1)
Quarter: 2013Q1

REPORT INFORMATION
  Report Type: Report from Study
  Country: US (occurrence: US)
  Receive Date: 20130129
  Receipt Date: 20130129
  Transmission Date: 20140127
  Serious: No
  Sender: FDA-Public Use
  Company Number: US-ABBOTT-12P-163-0920612-00

PATIENT
  Age: 60 Year
  Sex: Female

DRUGS (10)
  1. HUMIRA 40 MG/0.8 ML PEN [Suspect]
     Indication: RHEUMATOID ARTHRITIS
     Dates: start: 201202
  2. ARAVA [Concomitant]
     Indication: PRODUCT USED FOR UNKNOWN INDICATION
  3. SULFADINE [Concomitant]
     Indication: RHEUMATOID ARTHRITIS
  4. BABY ASPIRIN [Concomitant]
     Indication: PRODUCT USED FOR UNKNOWN INDICATION
  5. B12 [Concomitant]
     Indication: PERNICIOUS ANAEMIA
  6. LORTAB [Concomitant]
     Indication: PAIN
     Dosage: UP TO FOUR TIMES A DAY, PRN
  7. DEXILANT [Concomitant]
     Indication: GASTROOESOPHAGEAL REFLUX DISEASE
  8. ZYRTEC [Concomitant]
     Indication: HYPERSENSITIVITY
     Dosage: ALTERNATING SCHEDULE
  9. CLARITIN [Concomitant]
     Indication: HYPERSENSITIVITY
     Dosage: ALTERNATING SCHEDULE, DAILY
  10. AMBIEN [Concomitant]
     Indication: SLEEP DISORDER THERAPY
     Dosage: 1 - 2 TABLETS EVERY NIGHT

REACTIONS (2)
  - Incorrect route of drug administration [Not Recovered/Not Resolved]
  - Local swelling [Not Recovered/Not Resolved]
